FAERS Safety Report 6185542-3 (Version None)
Quarter: 2009Q2

REPORT INFORMATION
  Report Type: 
  Country: None (occurrence: None)
  Receive Date: 20090507
  Receipt Date: 20090428
  Transmission Date: 20091009
  Serious: Yes (Hospitalization)
  Sender: FDA-Public Use
  Company Number: GXKR2009DE05040

PATIENT
  Age: 66 Year
  Sex: Female
  Weight: 65 kg

DRUGS (5)
  1. ASS 500 HEXAL BEI FIEBER UND SCHMERZEN (NGX)(ACETYLSALICYLIC ACID) DIS [Suspect]
     Indication: NASOPHARYNGITIS
     Dosage: 500 MG, QD, ORAL
     Route: 048
     Dates: start: 20090218, end: 20090224
  2. CALCIUM SANDOZ (NGX) (CALCIUM) EFFERVESCENT TABLET [Suspect]
     Dosage: 100 MG, QD, ORAL
     Route: 048
     Dates: start: 20000101
  3. CANDESARTAN CILEXETIL [Suspect]
     Indication: HYPERTENSION
     Dosage: 4 MG, QD, ORAL
     Route: 048
     Dates: start: 20090219
  4. DIHYDROTACHYSTEROL [Suspect]
     Indication: HYPOPARATHYROIDISM
     Dosage: ORAL
     Route: 048
     Dates: start: 19940101
  5. L-THYROXINE (LEVOTHYROXINE) [Concomitant]

REACTIONS (2)
  - DRUG INTERACTION [None]
  - HYPERCALCAEMIA [None]
